FAERS Safety Report 4688413-4 (Version None)
Quarter: 2005Q2

REPORT INFORMATION
  Report Type: 
  Country: None (occurrence: None)
  Receive Date: 20050609
  Receipt Date: 20050527
  Transmission Date: 20051028
  Serious: Yes (Life-Threatening, Other)
  Sender: FDA-Public Use
  Company Number: 2005081858

PATIENT
  Age: 59 Year
  Sex: Male
  Weight: 80 kg

DRUGS (3)
  1. SOLU-MEDROL [Suspect]
     Indication: ILL-DEFINED DISORDER
     Dosage: INTRAVENOUS
     Route: 042
     Dates: start: 20041110, end: 20041110
  2. TENORMIN [Concomitant]
  3. XYLOCAINE [Concomitant]

REACTIONS (3)
  - CIRCULATORY COLLAPSE [None]
  - PROCEDURAL COMPLICATION [None]
  - SKIN TEST POSITIVE [None]
